FAERS Safety Report 11135399 (Version 3)
Quarter: 2015Q3

REPORT INFORMATION
  Report Type: Spontaneous
  Country: US (occurrence: US)
  Receive Date: 20150525
  Receipt Date: 20150723
  Transmission Date: 20151125
  Serious: Yes (Other)
  Sender: FDA-Public Use
  Company Number: US-ELI_LILLY_AND_COMPANY-US201504009917

PATIENT
  Age: 51 Year
  Sex: Male

DRUGS (4)
  1. STRATTERA [Suspect]
     Active Substance: ATOMOXETINE HYDROCHLORIDE
     Indication: ATTENTION DEFICIT/HYPERACTIVITY DISORDER
     Dosage: 18 MG, UNK
     Route: 065
     Dates: start: 20150428, end: 20150429
  2. ALPRAZOLAM. [Concomitant]
     Active Substance: ALPRAZOLAM
     Indication: POST-TRAUMATIC STRESS DISORDER
     Dosage: UNK, PRN
     Route: 065
  3. SYNTHROID [Concomitant]
     Active Substance: LEVOTHYROXINE SODIUM
     Dosage: UNK, UNKNOWN
     Route: 065
  4. PRILOSEC [Concomitant]
     Active Substance: OMEPRAZOLE MAGNESIUM
     Dosage: UNK, UNKNOWN
     Route: 065

REACTIONS (19)
  - Yawning [Unknown]
  - Confusional state [Recovering/Resolving]
  - Post-traumatic stress disorder [Unknown]
  - Abdominal pain [Recovered/Resolved]
  - Drooling [Not Recovered/Not Resolved]
  - Snoring [Not Recovered/Not Resolved]
  - Nocturia [Unknown]
  - Dyspnoea [Unknown]
  - Suicidal ideation [Not Recovered/Not Resolved]
  - Agitation [Unknown]
  - Throat tightness [Not Recovered/Not Resolved]
  - Headache [Recovered/Resolved]
  - Insomnia [Not Recovered/Not Resolved]
  - Chest discomfort [Unknown]
  - Dizziness [Recovered/Resolved]
  - Micturition disorder [Unknown]
  - Asthma [Unknown]
  - Somnolence [Recovered/Resolved]
  - Flatulence [Recovered/Resolved]

NARRATIVE: CASE EVENT DATE: 20150428
